FAERS Safety Report 6093466-5 (Version None)
Quarter: 2009Q1

REPORT INFORMATION
  Report Type: 
  Country: None (occurrence: None)
  Receive Date: 20090223
  Receipt Date: 20090205
  Transmission Date: 20090719
  Serious: Yes (Hospitalization)
  Sender: FDA-Public Use
  Company Number: 1000004779

PATIENT
  Age: 84 Year
  Sex: Female

DRUGS (1)
  1. MEMANTINE HCL [Suspect]
     Indication: DEMENTIA ALZHEIMER'S TYPE
     Dosage: 20 MG (20 MG), ORAL
     Route: 048
     Dates: start: 20081120, end: 20090114

REACTIONS (4)
  - AGITATION [None]
  - DEMENTIA [None]
  - HYPERPHAGIA [None]
  - SLEEP DISORDER [None]
